FAERS Safety Report 19141602 (Version 1)
Quarter: 2021Q2

REPORT INFORMATION
  Report Type: Spontaneous
  Country: CN (occurrence: CN)
  Receive Date: 20210415
  Receipt Date: 20210415
  Transmission Date: 20210717
  Serious: Yes (Hospitalization, Other)
  Sender: FDA-Public Use
  Company Number: CN-PFIZER INC-2021373548

PATIENT
  Age: 31 Year
  Sex: Male

DRUGS (4)
  1. CISPLATIN. [Suspect]
     Active Substance: CISPLATIN
     Indication: CHEMOTHERAPY
     Dosage: 180.000 MG, 1X/DAY
     Route: 041
     Dates: start: 20210323, end: 20210323
  2. GLUCOSE [Concomitant]
     Active Substance: DEXTROSE
     Indication: VEHICLE SOLUTION USE
     Dosage: 500.000 ML, 1X/DAY
     Route: 041
     Dates: start: 20210323, end: 20210323
  3. EPIRUBICIN HCL [Suspect]
     Active Substance: EPIRUBICIN HYDROCHLORIDE
     Indication: CHEMOTHERAPY
     Dosage: 30.000 MG, 1X/DAY
     Route: 041
     Dates: start: 20210323, end: 20210326
  4. SODIUM CHLORIDE. [Concomitant]
     Active Substance: SODIUM CHLORIDE
     Indication: VEHICLE SOLUTION USE
     Dosage: 250.0000 ML, 1X/DAY
     Dates: start: 20210323, end: 20210326

REACTIONS (5)
  - Decreased appetite [Unknown]
  - Electrolyte imbalance [Unknown]
  - Nausea [Unknown]
  - Vomiting [Unknown]
  - Seizure [Unknown]

NARRATIVE: CASE EVENT DATE: 202103
